FAERS Safety Report 13526861 (Version 1)
Quarter: 2017Q2

REPORT INFORMATION
  Report Type: Spontaneous
  Country: US (occurrence: US)
  Receive Date: 20170509
  Receipt Date: 20170509
  Transmission Date: 20170830
  Serious: No
  Sender: FDA-Public Use
  Company Number: US-TEVA-762504USA

PATIENT
  Age: 4 Year
  Sex: Male

DRUGS (3)
  1. QVAR [Suspect]
     Active Substance: BECLOMETHASONE DIPROPIONATE
     Dosage: 2 PUFFS TWICE DAILY
     Dates: start: 20170419
  2. ALBUTEROL INHALER [Concomitant]
     Active Substance: ALBUTEROL
  3. ALBUTEROL NEBULIZING SOLUTION [Concomitant]

REACTIONS (2)
  - Drug administered to patient of inappropriate age [Unknown]
  - Drug prescribing error [Unknown]

NARRATIVE: CASE EVENT DATE: 20170419
